FAERS Safety Report 8906897 (Version 2)
Quarter: 2013Q1

REPORT INFORMATION
  Report Type: Spontaneous
  Country: US (occurrence: US)
  Receive Date: 20121114
  Receipt Date: 20130109
  Transmission Date: 20140127
  Serious: Yes (Hospitalization)
  Sender: FDA-Public Use
  Company Number: US-BAYER-2012-116606

PATIENT
  Age: 26 Year
  Sex: Female
  Weight: 68.03 kg

DRUGS (1)
  1. YAZ [Suspect]
     Dosage: UNK
     Dates: start: 20050305, end: 200910

REACTIONS (15)
  - Cerebrovascular accident [None]
  - Road traffic accident [None]
  - Traumatic liver injury [None]
  - Abdominal injury [None]
  - Femur fracture [None]
  - Spinal fracture [None]
  - Rib fracture [None]
  - Hip fracture [None]
  - Anxiety [None]
  - Emotional distress [None]
  - Pain [None]
  - General physical health deterioration [None]
  - Injury [None]
  - Pain [None]
  - Anhedonia [None]
